FAERS Safety Report 9874415 (Version 1)
Quarter: 2014Q1

REPORT INFORMATION
  Report Type: Spontaneous
  Country: US (occurrence: US)
  Receive Date: 20140206
  Receipt Date: 20140206
  Transmission Date: 20141002
  Serious: Yes (Other)
  Sender: FDA-Public Use
  Company Number: US-ROCHE-1345331

PATIENT
  Sex: Male

DRUGS (5)
  1. PEGASYS [Suspect]
     Indication: CHRONIC HEPATITIS C
     Route: 058
     Dates: start: 20140114
  2. RIBAPAK [Concomitant]
  3. SOVALDI [Concomitant]
  4. TRAZODONE [Concomitant]
  5. ZOLOFT [Concomitant]

REACTIONS (2)
  - Cystitis [Not Recovered/Not Resolved]
  - Blood urine present [Not Recovered/Not Resolved]
